FAERS Safety Report 5102399-X (Version None)
Quarter: 2006Q3

REPORT INFORMATION
  Report Type: 
  Country: None (occurrence: None)
  Receive Date: 20060912
  Receipt Date: 20060814
  Transmission Date: 20061208
  Serious: Yes (Hospitalization)
  Sender: FDA-Public Use
  Company Number: PHHO2006DE13355

PATIENT
  Age: 79 Year
  Sex: Male
  Weight: 76 kg

DRUGS (2)
  1. EXJADE [Suspect]
     Indication: BLOOD IRON INCREASED
     Dosage: 1500 MG, QD
     Route: 048
     Dates: start: 20060508
  2. NEORAL [Suspect]
     Indication: APLASTIC ANAEMIA
     Dosage: 350 MG DAILY
     Route: 048
     Dates: start: 20060807, end: 20060814

REACTIONS (9)
  - DIARRHOEA [None]
  - EAR HAEMORRHAGE [None]
  - EAR PAIN [None]
  - HYPOACUSIS [None]
  - NEUTROPENIA [None]
  - OTITIS MEDIA [None]
  - PYREXIA [None]
  - THROMBOCYTOPENIA [None]
  - VOMITING [None]
